FAERS Safety Report 4989267-9 (Version None)
Quarter: 2006Q2

REPORT INFORMATION
  Report Type: 
  Country: None (occurrence: None)
  Receive Date: 20060425
  Receipt Date: 20060413
  Transmission Date: 20061013
  Serious: Yes (Other)
  Sender: FDA-Public Use
  Company Number: S06-USA-01505-01

PATIENT
  Age: 45 Year
  Sex: Female

DRUGS (2)
  1. LEXAPRO [Suspect]
     Indication: ANXIETY
  2. LEXAPRO [Suspect]
     Indication: DEPRESSION

REACTIONS (1)
  - CATARACT [None]
